FAERS Safety Report 7918413-X (Version None)
Quarter: 2011Q4

REPORT INFORMATION
  Report Type: 
  Country: None (occurrence: None)
  Receive Date: 20111116
  Receipt Date: 20101103
  Transmission Date: 20120403
  Serious: No
  Sender: FDA-Public Use
  Company Number: US-AMGEN-USASP2010003343

PATIENT
  Sex: Male

DRUGS (1)
  1. ENBREL [Suspect]
     Indication: RHEUMATOID ARTHRITIS
     Dosage: 25 MG, 2 TIMES/WK
     Dates: start: 19990201

REACTIONS (8)
  - ARTHRALGIA [None]
  - VIRAL INFECTION [None]
  - MENISCUS REMOVAL [None]
  - INFLUENZA LIKE ILLNESS [None]
  - UPPER RESPIRATORY TRACT CONGESTION [None]
  - JOINT EFFUSION [None]
  - COUGH [None]
  - INFLUENZA [None]
